FAERS Safety Report 6297980-9 (Version None)
Quarter: 2009Q3

REPORT INFORMATION
  Report Type: 
  Country: None (occurrence: None)
  Receive Date: 20090805
  Receipt Date: 20090728
  Transmission Date: 20100115
  Serious: Yes (Hospitalization, Other)
  Sender: FDA-Public Use
  Company Number: B0542983A

PATIENT
  Sex: Male
  Weight: 84 kg

DRUGS (4)
  1. VALTREX [Suspect]
     Indication: HERPES ZOSTER
     Dosage: 500MG PER DAY
     Route: 048
     Dates: start: 20081014, end: 20081014
  2. VALTREX [Suspect]
     Dosage: 500MG TWICE PER DAY
     Route: 048
     Dates: start: 20081015, end: 20081016
  3. LOXONIN [Concomitant]
     Indication: PAIN
     Route: 048
     Dates: start: 20081016
  4. SELBEX [Concomitant]
     Indication: PAIN
     Route: 048
     Dates: start: 20081016

REACTIONS (8)
  - ATAXIA [None]
  - DIZZINESS [None]
  - DYSLALIA [None]
  - HALLUCINATION, VISUAL [None]
  - INSOMNIA [None]
  - NERVOUS SYSTEM DISORDER [None]
  - PSYCHIATRIC SYMPTOM [None]
  - TOXIC ENCEPHALOPATHY [None]
